FAERS Safety Report 16659882 (Version 5)
Quarter: 2019Q3

REPORT INFORMATION
  Report Type: Report from Study
  Country: CA (occurrence: CA)
  Receive Date: 20190802
  Receipt Date: 20190930
  Transmission Date: 20191004
  Serious: Yes (Hospitalization, Other)
  Sender: FDA-Public Use
  Company Number: CA-BRISTOL-MYERS SQUIBB COMPANY-BMS-2019-037591

PATIENT
  Age: 31 Year
  Sex: Female

DRUGS (4)
  1. NIVOLUMAB [Suspect]
     Active Substance: NIVOLUMAB
     Indication: MALIGNANT MELANOMA
     Dosage: 171 MILLIGRAM, Q2WK
     Route: 042
     Dates: start: 20190327, end: 20190604
  2. ATIVAN [Concomitant]
     Active Substance: LORAZEPAM
     Indication: PRODUCT USED FOR UNKNOWN INDICATION
     Dosage: UNK
     Route: 065
  3. MULTIVITAMIN                       /00097801/ [Concomitant]
     Active Substance: VITAMINS
     Indication: PRODUCT USED FOR UNKNOWN INDICATION
     Dosage: UNK
     Route: 065
  4. SERTRALINE [Concomitant]
     Active Substance: SERTRALINE HYDROCHLORIDE
     Indication: DEPRESSION
     Dosage: 25 MILLIGRAM, QD
     Route: 048
     Dates: start: 20190604

REACTIONS (26)
  - Pain in extremity [Unknown]
  - Sneezing [Recovered/Resolved]
  - Eye discharge [Recovered/Resolved]
  - Rhinorrhoea [Unknown]
  - Fatigue [Unknown]
  - Diarrhoea [Recovered/Resolved]
  - Feeling abnormal [Unknown]
  - Vomiting [Recovered/Resolved]
  - Hypoaesthesia [Unknown]
  - Hyperhidrosis [Recovered/Resolved]
  - Anxiety [Unknown]
  - Appetite disorder [Recovered/Resolved]
  - Influenza [Recovered/Resolved]
  - Pyrexia [Recovered/Resolved]
  - Hypoaesthesia oral [Unknown]
  - Headache [Recovered/Resolved]
  - Throat irritation [Unknown]
  - Arthralgia [Unknown]
  - Migraine [Recovering/Resolving]
  - Tooth infection [Recovering/Resolving]
  - Somnolence [Recovered/Resolved]
  - Malaise [Recovered/Resolved]
  - Mouth ulceration [Recovering/Resolving]
  - Nasal congestion [Unknown]
  - Nausea [Recovered/Resolved]
  - Depression [Unknown]

NARRATIVE: CASE EVENT DATE: 20190327
